FAERS Safety Report 8473151-2 (Version None)
Quarter: 2012Q2

REPORT INFORMATION
  Report Type: 
  Country: None (occurrence: None)
  Receive Date: 20120627
  Receipt Date: 20120621
  Transmission Date: 20120825
  Serious: Yes (Other)
  Sender: FDA-Public Use
  Company Number: US-PFIZER INC-2012150879

PATIENT
  Sex: Male

DRUGS (2)
  1. ZOLOFT [Suspect]
  2. LIPITOR [Suspect]

REACTIONS (1)
  - LEG AMPUTATION [None]
